FAERS Safety Report 8865835 (Version 1)
Quarter: 2012Q4

REPORT INFORMATION
  Report Type: 
  Country: US (occurrence: US)
  Receive Date: 20121024
  Receipt Date: 20121024
  Transmission Date: 20130627
  Serious: No
  Sender: FDA-Public Use
  Company Number: US-AMGEN-USASP2011064397

PATIENT
  Age: 75 Year
  Sex: Male
  Weight: 95.24 kg

DRUGS (11)
  1. ENBREL [Suspect]
     Indication: PRODUCT USED FOR UNKNOWN INDICATION
     Dosage: 50 mg, qwk
     Route: 058
  2. NAPROXEN [Concomitant]
     Dosage: 375 mg, UNK
  3. CRESTOR [Concomitant]
     Dosage: 5 mg, UNK
  4. METHOTREXATE [Concomitant]
     Dosage: 2.5 mg, UNK
  5. MULTIVITAMIN                       /00097801/ [Concomitant]
  6. VITAMIN D /00107901/ [Concomitant]
  7. OMEGA 3                            /01334101/ [Concomitant]
     Dosage: 1000 mg, UNK
  8. VITAMIN B12                        /00056201/ [Concomitant]
     Dosage: 100 mug, UNK
  9. MAGNESIUM [Concomitant]
     Dosage: 200 mg, UNK
  10. OMEPRAZOLE [Concomitant]
     Dosage: 10 mg, UNK
  11. CITRACAL                           /00751520/ [Concomitant]

REACTIONS (6)
  - Lung disorder [Unknown]
  - Pulmonary mass [Unknown]
  - Musculoskeletal pain [Unknown]
  - Arthralgia [Unknown]
  - Nodule [Unknown]
  - Pain [Unknown]
